FAERS Safety Report 8553341 (Version 3)
Quarter: 2012Q4

REPORT INFORMATION
  Report Type: 
  Country: JP (occurrence: JP)
  Receive Date: 20120509
  Receipt Date: 20121116
  Transmission Date: 20130627
  Serious: Yes (Other)
  Sender: FDA-Public Use
  Company Number: JP-PFIZER INC-2012111243

PATIENT
  Age: 78 Year
  Sex: Male
  Weight: 44 kg

DRUGS (1)
  1. SUTENT [Suspect]
     Indication: GASTROINTESTINAL STROMAL TUMOUR
     Dosage: UNK
     Route: 048
     Dates: start: 20111104, end: 20120305

REACTIONS (2)
  - Optic neuropathy [Recovering/Resolving]
  - Macular oedema [Recovering/Resolving]
